FAERS Safety Report 4372604-6 (Version None)
Quarter: 2004Q2

REPORT INFORMATION
  Report Type: 
  Country: None (occurrence: None)
  Receive Date: 20040608
  Receipt Date: 20040608
  Transmission Date: 20050107
  Serious: No
  Sender: FDA-Public Use
  Company Number: None

PATIENT
  Age: 75 Year
  Sex: Female

DRUGS (6)
  1. CRESTOR [Suspect]
     Indication: BLOOD CHOLESTEROL
     Dosage: 1 PO DAILY
     Route: 048
     Dates: start: 20040507, end: 20040520
  2. ZETIA [Concomitant]
  3. LISINOPRIL [Concomitant]
  4. SYNTHROID [Concomitant]
  5. PRILOSEC [Concomitant]
  6. AZMACORT [Concomitant]

REACTIONS (3)
  - AMNESIA [None]
  - MYALGIA [None]
  - PAIN IN EXTREMITY [None]
